FAERS Safety Report 8060216-2 (Version None)
Quarter: 2012Q1

REPORT INFORMATION
  Report Type: 
  Country: None (occurrence: None)
  Receive Date: 20120120
  Receipt Date: 20111005
  Transmission Date: 20120608
  Serious: No
  Sender: FDA-Public Use
  Company Number: US-NOVEN-11US003367

PATIENT
  Sex: Female
  Weight: 54.422 kg

DRUGS (6)
  1. FENTANYL [Suspect]
     Indication: MULTIPLE SCLEROSIS
     Dosage: 100 UG, 1 PATCH EVERY 3 DAYS
     Route: 062
  2. HYDROCODONE BITARTRATE [Concomitant]
     Indication: BREAKTHROUGH PAIN
     Dosage: UNK
     Route: 048
  3. LEXAPRO [Concomitant]
     Indication: DEPRESSION
     Dosage: 10 MG,
     Route: 048
  4. FENTANYL [Suspect]
     Indication: PAIN
  5. FENTANYL [Suspect]
     Indication: LIMB OPERATION
  6. TIZANIDINE HCL [Concomitant]
     Indication: MUSCLE RELAXANT THERAPY
     Dosage: UNK
     Route: 048

REACTIONS (3)
  - APPLICATION SITE PRURITUS [None]
  - APPLICATION SITE ERYTHEMA [None]
  - DERMATITIS CONTACT [None]
